FAERS Safety Report 8534572-2 (Version None)
Quarter: 2012Q3

REPORT INFORMATION
  Report Type: 
  Country: None (occurrence: None)
  Receive Date: 20120724
  Receipt Date: 20120710
  Transmission Date: 20120928
  Serious: No
  Sender: FDA-Public Use
  Company Number: US-ASTRAZENECA-2012SE47423

PATIENT
  Age: 51 Year
  Sex: Female
  Weight: 68 kg

DRUGS (16)
  1. NEXIUM [Suspect]
     Indication: GASTROOESOPHAGEAL REFLUX DISEASE
     Route: 048
  2. BROMOCRIPTINE MESYLATE [Concomitant]
  3. ZAFIRLUKAST [Suspect]
     Route: 048
  4. VENLAFAXINE HCL EXTENDED-RELEASE [Concomitant]
  5. SYNTHROID [Concomitant]
  6. XOPENEX HFA [Concomitant]
     Dosage: 45 MCG, 2 PUFFS, 4 TIMES A DAY AS NEEDED
  7. ASMANEX TWISTHALER [Concomitant]
     Dosage: 1 PUFF EVERY MORNING
  8. BESICARE [Concomitant]
     Dosage: 5 MG IN THE MORNING AND 10 MG AT NIGHT
  9. MIDODRINE HYDROCHLORIDE [Concomitant]
  10. ABILIFY [Concomitant]
  11. RESTASIS [Concomitant]
     Indication: DRY EYE
     Dosage: 1 DROP EACH EYE, BID
  12. SYSTANE LUBRICATING EYEDROPS [Concomitant]
     Indication: EYE DISORDER
  13. ALBUTEROL SULFATE [Concomitant]
  14. SIMVASTATIN [Concomitant]
  15. CLONAZEPAM [Concomitant]
  16. BUPROPION HYDROCHLORIDE [Concomitant]

REACTIONS (3)
  - OSTEOPOROSIS [None]
  - WEIGHT DECREASED [None]
  - WEIGHT INCREASED [None]
